FAERS Safety Report 6153690-X (Version None)
Quarter: 2009Q2

REPORT INFORMATION
  Report Type: 
  Country: None (occurrence: None)
  Receive Date: 20090409
  Receipt Date: 20090325
  Transmission Date: 20091009
  Serious: No
  Sender: FDA-Public Use
  Company Number: 2009-194117-NL

PATIENT
  Sex: Female

DRUGS (1)
  1. ETONOGESTREL [Suspect]
     Dosage: DF

REACTIONS (3)
  - COMPLICATION OF DEVICE REMOVAL [None]
  - IMPLANT SITE NERVE INJURY [None]
  - MENSTRUAL DISORDER [None]
